FAERS Safety Report 6535833-9 (Version None)
Quarter: 2010Q1

REPORT INFORMATION
  Report Type: 
  Country: None (occurrence: None)
  Receive Date: 20100106
  Receipt Date: 20091223
  Transmission Date: 20100710
  Serious: Yes (Death, Hospitalization)
  Sender: FDA-Public Use
  Company Number: 2009AC000374

PATIENT
  Age: 61 Year
  Sex: Female

DRUGS (29)
  1. DIGOXIN [Suspect]
     Dosage: 0.25 MG; PO
     Route: 048
     Dates: end: 20080426
  2. DIGOXIN [Suspect]
     Dosage: .20 MG;QD;PO
     Route: 048
  3. MOL-ITRON [Concomitant]
  4. THERAGRAN M [Concomitant]
  5. TYLOX [Concomitant]
  6. TYLENOL W/ CODEINE NO. 3 [Concomitant]
  7. LASIX [Concomitant]
  8. LISINOPRIL [Concomitant]
  9. CRESTOR [Concomitant]
  10. ASPIRIN [Concomitant]
  11. POTASSIUM CHLORIDE [Concomitant]
  12. PRILOSEC [Concomitant]
  13. PROPECIA [Concomitant]
  14. MULTI-VITAMIN [Concomitant]
  15. CALCIUM [Concomitant]
  16. VITAMIN C [Concomitant]
  17. VITAMIN D [Concomitant]
  18. GARLIC [Concomitant]
  19. FISH OIL [Concomitant]
  20. FOLIC ACID [Concomitant]
  21. COUMADIN [Concomitant]
  22. LASIX [Concomitant]
  23. LISINOPRIL [Concomitant]
  24. CRESTOR [Concomitant]
  25. ASPIRIN [Concomitant]
  26. POTASSIUM [Concomitant]
  27. LANOXICAPS [Concomitant]
  28. PRILOSEC [Concomitant]
  29. COUMADIN [Concomitant]

REACTIONS (24)
  - ABDOMINAL PAIN UPPER [None]
  - ASTHMA [None]
  - ATRIAL TACHYCARDIA [None]
  - BONE GRAFT [None]
  - BUNDLE BRANCH BLOCK LEFT [None]
  - CAROTID ARTERY STENOSIS [None]
  - CEREBROVASCULAR ACCIDENT [None]
  - DIARRHOEA [None]
  - GOUT [None]
  - HOT FLUSH [None]
  - HYPERCHOLESTEROLAEMIA [None]
  - HYPERTENSION [None]
  - INTERNATIONAL NORMALISED RATIO INCREASED [None]
  - INTERVERTEBRAL DISC DEGENERATION [None]
  - LEFT VENTRICULAR HYPERTROPHY [None]
  - MITRAL VALVE REPLACEMENT [None]
  - OSTEOARTHRITIS [None]
  - PEPTIC ULCER [None]
  - RESTLESSNESS [None]
  - ROTATOR CUFF SYNDROME [None]
  - SPINAL OSTEOARTHRITIS [None]
  - SUDDEN CARDIAC DEATH [None]
  - THERAPEUTIC AGENT TOXICITY [None]
  - TRANSIENT ISCHAEMIC ATTACK [None]
